FAERS Safety Report 17843421 (Version 1)
Quarter: 2020Q2

REPORT INFORMATION
  Report Type: Report from Study
  Country: CO (occurrence: CO)
  Receive Date: 20200530
  Receipt Date: 20200530
  Transmission Date: 20200714
  Serious: Yes (Hospitalization)
  Sender: FDA-Public Use
  Company Number: NVSC2018CO004340

PATIENT
  Sex: Male

DRUGS (1)
  1. GLIVEC [Suspect]
     Active Substance: IMATINIB MESYLATE
     Indication: LYMPHOCYTIC LEUKAEMIA
     Dosage: 400 MG, QD
     Route: 065

REACTIONS (3)
  - General physical health deterioration [Unknown]
  - Dehydration [Unknown]
  - Pain in extremity [Unknown]
